FAERS Safety Report 8718063 (Version 6)
Quarter: 2013Q1

REPORT INFORMATION
  Report Type: Spontaneous
  Country: DE (occurrence: None)
  Receive Date: 20120726
  Receipt Date: 20130124
  Transmission Date: 20140127
  Serious: Yes (Hospitalization)
  Sender: FDA-Public Use
  Company Number: US-2012-10944

PATIENT
  Age: 45 Year
  Sex: Female

DRUGS (3)
  1. OPC-41061 (TOLVAPTAN) TABLET, 15 MG MILLIGRAM(S) [Suspect]
     Indication: CONGENITAL CYSTIC KIDNEY DISEASE
     Dosage: 60 MG, DAILY DOSE, ORAL
     Route: 048
     Dates: start: 20111015, end: 20120704
  2. RAMIPRIL [Concomitant]
  3. OMEPRAZOLE [Concomitant]

REACTIONS (12)
  - Hepatic cyst [None]
  - Condition aggravated [None]
  - Stress [None]
  - Abdominal discomfort [None]
  - Waist circumference increased [None]
  - Sleep disorder [None]
  - Vertigo [None]
  - Nausea [None]
  - Blood creatinine increased [None]
  - Alanine aminotransferase increased [None]
  - Mean cell volume abnormal [None]
  - Red cell distribution width increased [None]
